FAERS Safety Report 18574965 (Version 3)
Quarter: 2023Q1

REPORT INFORMATION
  Report Type: Spontaneous
  Country: US (occurrence: None)
  Receive Date: 20201203
  Receipt Date: 20230213
  Transmission Date: 20230417
  Serious: Yes (Death, Hospitalization, Other)
  Sender: FDA-Public Use
  Company Number: 2020SF59635

PATIENT
  Age: 11742 Day
  Sex: Female
  Weight: 117.9 kg

DRUGS (46)
  1. NEXIUM [Suspect]
     Active Substance: ESOMEPRAZOLE MAGNESIUM
     Indication: Gastrooesophageal reflux disease
     Route: 048
     Dates: start: 201001, end: 201812
  2. NEXIUM [Suspect]
     Active Substance: ESOMEPRAZOLE MAGNESIUM
     Indication: Gastrooesophageal reflux disease
     Route: 048
     Dates: start: 2010, end: 2018
  3. PRILOSEC [Suspect]
     Active Substance: OMEPRAZOLE MAGNESIUM
     Indication: Gastrooesophageal reflux disease
     Route: 048
     Dates: start: 201001, end: 201812
  4. PRILOSEC [Suspect]
     Active Substance: OMEPRAZOLE MAGNESIUM
     Indication: Gastrooesophageal reflux disease
     Route: 048
     Dates: start: 2010, end: 2018
  5. PROTONIX [Suspect]
     Active Substance: PANTOPRAZOLE SODIUM
     Indication: Gastrooesophageal reflux disease
     Route: 065
     Dates: start: 201001, end: 201812
  6. PROTONIX [Suspect]
     Active Substance: PANTOPRAZOLE SODIUM
     Indication: Gastrooesophageal reflux disease
     Dates: start: 2010, end: 2018
  7. PROTONIX [Suspect]
     Active Substance: PANTOPRAZOLE SODIUM
     Indication: Gastrooesophageal reflux disease
     Route: 065
     Dates: start: 2017
  8. ZITHROMAX [Concomitant]
     Active Substance: AZITHROMYCIN DIHYDRATE
     Indication: Infection
     Dates: start: 20001111, end: 20030528
  9. TRIAMTERENE [Concomitant]
     Active Substance: TRIAMTERENE
     Indication: Oedema
     Dates: start: 20001111, end: 20001126
  10. HYDROCHLOROTHIAZIDE [Concomitant]
     Active Substance: HYDROCHLOROTHIAZIDE
     Indication: Oedema
     Dates: start: 20030528, end: 20150316
  11. LISINOPRIL [Concomitant]
     Active Substance: LISINOPRIL
     Indication: Hypertension
     Dates: start: 20060414, end: 20181203
  12. FUROSEMIDE [Concomitant]
     Active Substance: FUROSEMIDE
     Indication: Oedema
     Dates: start: 20060414, end: 20150601
  13. PRAVASTATIN [Concomitant]
     Active Substance: PRAVASTATIN
     Indication: Hyperlipidaemia
     Dates: start: 20070630, end: 20071020
  14. SPIRONOLACTONE [Concomitant]
     Active Substance: SPIRONOLACTONE
     Indication: Oedema
     Dates: start: 20070630, end: 20150513
  15. DOXYCYCLINE [Concomitant]
     Active Substance: DOXYCYCLINE
     Indication: Infection
     Dates: start: 20090901, end: 20180829
  16. AMOXICILLIN [Concomitant]
     Active Substance: AMOXICILLIN
     Indication: Infection
     Dates: start: 20140721, end: 20140728
  17. HYDRALAZINE [Concomitant]
     Active Substance: HYDRALAZINE HYDROCHLORIDE
     Indication: Hypertension
     Dates: start: 20141021, end: 20181203
  18. CIPROFLOXACIN [Concomitant]
     Active Substance: CIPROFLOXACIN
     Indication: Infection
     Dates: start: 20190104, end: 20190111
  19. GENTAMICIN [Concomitant]
     Active Substance: GENTAMICIN
     Indication: Infection
  20. CALCITRIOL [Concomitant]
     Active Substance: CALCITRIOL
  21. CARVEDILOL [Concomitant]
     Active Substance: CARVEDILOL
  22. VITAMIN D2 [Concomitant]
     Active Substance: ERGOCALCIFEROL
  23. NIFEDIPINE [Concomitant]
     Active Substance: NIFEDIPINE
  24. TRAZODONE [Concomitant]
     Active Substance: TRAZODONE HYDROCHLORIDE
  25. SERTRALINE [Concomitant]
     Active Substance: SERTRALINE HYDROCHLORIDE
  26. FLUCONAZOLE [Concomitant]
     Active Substance: FLUCONAZOLE
  27. KETOCONAZOLE [Concomitant]
     Active Substance: KETOCONAZOLE
  28. MONTELUKAST [Concomitant]
     Active Substance: MONTELUKAST SODIUM
  29. FLOVENT [Concomitant]
     Active Substance: FLUTICASONE PROPIONATE
  30. TUSSIONEX PENNKINETIC [Concomitant]
     Active Substance: CHLORPHENIRAMINE\HYDROCODONE
  31. CLARITIN [Concomitant]
     Active Substance: LORATADINE
  32. ROXICET [Concomitant]
     Active Substance: ACETAMINOPHEN\OXYCODONE HYDROCHLORIDE
  33. XENICAL [Concomitant]
     Active Substance: ORLISTAT
  34. TRIMOX [Concomitant]
     Active Substance: AMOXICILLIN
  35. IBUPROFEN [Concomitant]
     Active Substance: IBUPROFEN
  36. OMNICEF [Concomitant]
     Active Substance: CEFDINIR
  37. ASMANEX [Concomitant]
     Active Substance: MOMETASONE FUROATE
  38. SINGULAIR [Concomitant]
     Active Substance: MONTELUKAST SODIUM
  39. CLINDESSE [Concomitant]
     Active Substance: CLINDAMYCIN PHOSPHATE
  40. PROAIR HFA [Concomitant]
     Active Substance: ALBUTEROL SULFATE
  41. DIGOXIN [Concomitant]
     Active Substance: DIGOXIN
  42. METHYLDOPA [Concomitant]
     Active Substance: METHYLDOPA
  43. MOMENTASONE [Concomitant]
  44. ONDANSETRON [Concomitant]
     Active Substance: ONDANSETRON
  45. SODIUM BICARBONATE [Concomitant]
     Active Substance: SODIUM BICARBONATE
  46. PHENERGAN [Concomitant]
     Active Substance: PROMETHAZINE HYDROCHLORIDE

REACTIONS (7)
  - Death [Fatal]
  - Acute kidney injury [Unknown]
  - Chronic kidney disease [Unknown]
  - End stage renal disease [Unknown]
  - Renal failure [Unknown]
  - Nephrogenic anaemia [Unknown]
  - Renal tubular necrosis [Unknown]

NARRATIVE: CASE EVENT DATE: 20110624
